FAERS Safety Report 18302979 (Version 2)
Quarter: 2021Q1

REPORT INFORMATION
  Report Type: Spontaneous
  Country: IT (occurrence: IT)
  Receive Date: 20200923
  Receipt Date: 20210129
  Transmission Date: 20210419
  Serious: Yes (Other)
  Sender: FDA-Public Use
  Company Number: IT-AMGEN-ITASP2020150516

PATIENT

DRUGS (1)
  1. ADALIMUMAB [Suspect]
     Active Substance: ADALIMUMAB
     Indication: TAKAYASU^S ARTERITIS
     Dosage: UNK
     Route: 065

REACTIONS (4)
  - Hypersensitivity [Unknown]
  - Takayasu^s arteritis [Unknown]
  - Off label use [Unknown]
  - Drug ineffective for unapproved indication [Unknown]
